FAERS Safety Report 6650086-9 (Version None)
Quarter: 2010Q1

REPORT INFORMATION
  Report Type: 
  Country: None (occurrence: None)
  Receive Date: 20100322
  Receipt Date: 20100310
  Transmission Date: 20100710
  Serious: Yes (Life-Threatening, Other)
  Sender: FDA-Public Use
  Company Number: 230036M10GBR

PATIENT
  Age: 67 Year
  Sex: Male
  Weight: 70 kg

DRUGS (9)
  1. REBIF [Suspect]
     Indication: OFF LABEL USE
     Dosage: 22 MCG, 1 IN 1 DAYS; INTRAVENOUS (NOT OTHERWISE SPECIFIED)
     Route: 042
     Dates: start: 20100302, end: 20100304
  2. REBIF [Suspect]
     Indication: TRAUMATIC LUNG INJURY
     Dosage: 22 MCG, 1 IN 1 DAYS; INTRAVENOUS (NOT OTHERWISE SPECIFIED)
     Route: 042
     Dates: start: 20100302, end: 20100304
  3. BENZYLPENICILLIN (BENZYLPENICILLIN) [Concomitant]
  4. DOCUSATE SODIUM (DOCUSATE SODIUM) [Concomitant]
  5. HEPARIN [Concomitant]
  6. LANSOPRAZOLE [Concomitant]
  7. SENNA (SENNA ALEXANDRINA) [Concomitant]
  8. ACTRAPID INSULIN (INSULIN HUMAN) [Concomitant]
  9. GLYCERYL TRINITRATE (GLYCERYL TRINITRATE) [Concomitant]

REACTIONS (6)
  - CARDIOMYOPATHY [None]
  - HAEMOPTYSIS [None]
  - HEART RATE INCREASED [None]
  - PULMONARY OEDEMA [None]
  - SEPSIS [None]
  - TACHYPNOEA [None]
